FAERS Safety Report 11512593 (Version 1)
Quarter: 2015Q3

REPORT INFORMATION
  Report Type: Spontaneous
  Country: TR (occurrence: TR)
  Receive Date: 20150916
  Receipt Date: 20150916
  Transmission Date: 20151125
  Serious: Yes (Life-Threatening, Hospitalization, Other)
  Sender: FDA-Public Use
  Company Number: TR-ACTAVIS-2015-19658

PATIENT
  Age: 37 Year
  Sex: Male

DRUGS (1)
  1. SILDENAFIL (UNKNOWN) [Suspect]
     Active Substance: SILDENAFIL
     Indication: ERECTILE DYSFUNCTION
     Dosage: UNK
     Route: 048

REACTIONS (2)
  - Ventricular fibrillation [Recovered/Resolved]
  - Atrial fibrillation [Recovered/Resolved]
